FAERS Safety Report 6845692-2 (Version None)
Quarter: 2010Q3

REPORT INFORMATION
  Report Type: 
  Country: None (occurrence: None)
  Receive Date: 20100715
  Receipt Date: 20071018
  Transmission Date: 20110219
  Serious: Yes (Other)
  Sender: FDA-Public Use
  Company Number: US-PFIZER INC-2007070668

PATIENT
  Sex: Male
  Weight: 95.7 kg

DRUGS (5)
  1. CHANTIX [Suspect]
     Indication: SMOKING CESSATION THERAPY
     Dates: start: 20070601
  2. ACETYLSALICYLIC ACID [Concomitant]
  3. PERSANTINE [Concomitant]
  4. LANTUS [Concomitant]
     Indication: DIABETES MELLITUS
  5. HUMALOG [Concomitant]
     Indication: DIABETES MELLITUS

REACTIONS (1)
  - BLOOD GLUCOSE INCREASED [None]
